FAERS Safety Report 17909421 (Version 5)
Quarter: 2021Q1

REPORT INFORMATION
  Report Type: Report from Study
  Country: US (occurrence: US)
  Receive Date: 20200617
  Receipt Date: 20210224
  Transmission Date: 20210419
  Serious: Yes (Hospitalization, Other)
  Sender: FDA-Public Use
  Company Number: US-SHIRE-US202019610

PATIENT
  Age: 10 Year
  Sex: Female

DRUGS (12)
  1. TEDUGLUTIDE [Suspect]
     Active Substance: TEDUGLUTIDE
     Dosage: 1.56 MILLIGRAM, 1X/DAY:QD
     Route: 058
     Dates: start: 20200110
  2. TEDUGLUTIDE [Suspect]
     Active Substance: TEDUGLUTIDE
     Dosage: 1.56 MILLIGRAM, 1X/DAY:QD
     Route: 058
     Dates: start: 20201111
  3. TEDUGLUTIDE [Suspect]
     Active Substance: TEDUGLUTIDE
     Dosage: 1.56 MILLIGRAM, 1X/DAY:QD
     Route: 058
     Dates: start: 20200110
  4. TEDUGLUTIDE [Suspect]
     Active Substance: TEDUGLUTIDE
     Indication: SHORT-BOWEL SYNDROME
     Dosage: 1.56 MILLIGRAM, 1X/DAY:QD
     Route: 058
     Dates: start: 20200109
  5. TEDUGLUTIDE [Suspect]
     Active Substance: TEDUGLUTIDE
     Indication: SHORT-BOWEL SYNDROME
     Dosage: 1.56 MILLIGRAM, 1X/DAY:QD
     Route: 058
     Dates: start: 20200109
  6. TEDUGLUTIDE [Suspect]
     Active Substance: TEDUGLUTIDE
     Indication: SHORT-BOWEL SYNDROME
     Dosage: 1.56 MILLIGRAM, 1X/DAY:QD
     Route: 058
     Dates: start: 20200109
  7. TEDUGLUTIDE [Suspect]
     Active Substance: TEDUGLUTIDE
     Dosage: 1.56 MILLIGRAM, 1X/DAY:QD
     Route: 058
     Dates: start: 20200110
  8. TEDUGLUTIDE [Suspect]
     Active Substance: TEDUGLUTIDE
     Dosage: 1.56 MILLIGRAM, 1X/DAY:QD
     Route: 058
     Dates: start: 20201111
  9. TEDUGLUTIDE [Suspect]
     Active Substance: TEDUGLUTIDE
     Dosage: 1.56 MILLIGRAM, 1X/DAY:QD
     Route: 058
     Dates: start: 20201111
  10. TEDUGLUTIDE [Suspect]
     Active Substance: TEDUGLUTIDE
     Dosage: 1.56 MILLIGRAM, 1X/DAY:QD
     Route: 058
     Dates: start: 20201111
  11. TEDUGLUTIDE [Suspect]
     Active Substance: TEDUGLUTIDE
     Indication: SHORT-BOWEL SYNDROME
     Dosage: 1.56 MILLIGRAM, 1X/DAY:QD
     Route: 058
     Dates: start: 20200109
  12. TEDUGLUTIDE [Suspect]
     Active Substance: TEDUGLUTIDE
     Dosage: 1.56 MILLIGRAM, 1X/DAY:QD
     Route: 058
     Dates: start: 20200110

REACTIONS (2)
  - Vascular device infection [Unknown]
  - Hospitalisation [Unknown]

NARRATIVE: CASE EVENT DATE: 20200531
